FAERS Safety Report 18583605 (Version 1)
Quarter: 2020Q4

REPORT INFORMATION
  Report Type: Report from Study
  Country: None (occurrence: KR)
  Receive Date: 20201207
  Receipt Date: 20201207
  Transmission Date: 20210114
  Serious: Yes (Hospitalization)
  Sender: FDA-Public Use
  Company Number: KR-ABBVIE-20K-090-3655373-00

PATIENT
  Age: 62 Year
  Sex: Female

DRUGS (4)
  1. HUMIRA [Suspect]
     Active Substance: ADALIMUMAB
     Route: 058
     Dates: start: 20201102, end: 20201102
  2. HUMIRA [Suspect]
     Active Substance: ADALIMUMAB
     Indication: BEHCET^S SYNDROME
     Dosage: ONCE
     Route: 058
     Dates: start: 20201003, end: 20201003
  3. HUMIRA [Suspect]
     Active Substance: ADALIMUMAB
     Route: 058
     Dates: start: 20201201
  4. HUMIRA [Suspect]
     Active Substance: ADALIMUMAB
     Dosage: ONCE
     Route: 058
     Dates: start: 20201017, end: 20201017

REACTIONS (6)
  - Acne [Unknown]
  - Back pain [Unknown]
  - Arthralgia [Recovering/Resolving]
  - Haematochezia [Recovered/Resolved]
  - Herpes zoster [Recovering/Resolving]
  - Abdominal pain [Recovering/Resolving]

NARRATIVE: CASE EVENT DATE: 2020
